FAERS Safety Report 7630601-9 (Version None)
Quarter: 2011Q3

REPORT INFORMATION
  Report Type: 
  Country: None (occurrence: None)
  Receive Date: 20110722
  Receipt Date: 20110718
  Transmission Date: 20111222
  Serious: Yes (Hospitalization)
  Sender: FDA-Public Use
  Company Number: US-ELI_LILLY_AND_COMPANY-US201107004444

PATIENT
  Sex: Male
  Weight: 73 kg

DRUGS (1)
  1. BYETTA [Suspect]

REACTIONS (4)
  - ADRENAL ADENOMA [None]
  - HEPATIC CYST [None]
  - PANCREATITIS [None]
  - RENAL CYST [None]
